FAERS Safety Report 20939501 (Version 32)
Quarter: 2023Q1

REPORT INFORMATION
  Report Type: Report from Study
  Country: CN (occurrence: None)
  Receive Date: 20220609
  Receipt Date: 20230309
  Transmission Date: 20230418
  Serious: Yes (Life-Threatening, Hospitalization)
  Sender: FDA-Public Use
  Company Number: CN-Eisai Medical Research-EC-2022-116556

PATIENT
  Age: 67 Year
  Sex: Female
  Weight: 65.1 kg

DRUGS (17)
  1. LENVATINIB [Suspect]
     Active Substance: LENVATINIB
     Indication: Endometrial cancer
     Dosage: STARTING DOSE AT 20 MG, FLUCTUATED DOSAGE
     Route: 048
     Dates: start: 20211020, end: 20220601
  2. PEMBROLIZUMAB [Suspect]
     Active Substance: PEMBROLIZUMAB
     Indication: Endometrial cancer
     Dosage: 400 MG MK-7684A COFORMULATION (VIBOSTOLIMAB 200MG PLUS PEMBROLIZUMAB 200MG)
     Route: 042
     Dates: start: 20211020, end: 20220511
  3. ACETAL [PARACETAMOL] [Concomitant]
     Dates: start: 20220602, end: 20220602
  4. HYDROXYZINE [Concomitant]
     Active Substance: HYDROXYZINE HYDROCHLORIDE
     Dates: start: 20211029
  5. LEVOTHYROXINE SODIUM [Concomitant]
     Active Substance: LEVOTHYROXINE SODIUM
     Dates: start: 20220530
  6. CORTISONE [Concomitant]
     Active Substance: CORTISONE
     Dates: start: 20220530, end: 20220602
  7. DOXEPIN HYDROCHLORIDE [Concomitant]
     Active Substance: DOXEPIN HYDROCHLORIDE
     Dates: start: 20220527, end: 20220608
  8. POTASSIUM PERMANGANATE [Concomitant]
     Active Substance: POTASSIUM PERMANGANATE
     Route: 061
     Dates: start: 20220527, end: 20220602
  9. CYPROHEPTADINE HYDROCHLORIDE [Concomitant]
     Active Substance: CYPROHEPTADINE HYDROCHLORIDE
     Dates: start: 20220527, end: 20220602
  10. MOMETASONE FUROATE [Concomitant]
     Active Substance: MOMETASONE FUROATE
     Dates: start: 20220527, end: 20220602
  11. SULFASIL [Concomitant]
     Dates: start: 20220527, end: 20220602
  12. EXFORGE [Concomitant]
     Active Substance: AMLODIPINE BESYLATE\VALSARTAN
     Dates: start: 20220527, end: 20220602
  13. ALLEGRA [Concomitant]
     Active Substance: FEXOFENADINE HYDROCHLORIDE
     Dates: start: 20220527, end: 20220602
  14. VISTARIL [Concomitant]
     Active Substance: HYDROXYZINE PAMOATE
     Dates: start: 20220527, end: 20220818
  15. PREDONINE [Concomitant]
     Active Substance: PREDNISOLONE
     Dates: start: 20220527, end: 20220601
  16. VIMAX [Concomitant]
     Route: 061
     Dates: start: 20220527, end: 20220602
  17. VIBOSTOLIMAB [Suspect]
     Active Substance: VIBOSTOLIMAB

REACTIONS (1)
  - Toxic epidermal necrolysis [Not Recovered/Not Resolved]

NARRATIVE: CASE EVENT DATE: 20220602
